FAERS Safety Report 4588652-7 (Version None)
Quarter: 2005Q1

REPORT INFORMATION
  Report Type: 
  Country: None (occurrence: None)
  Receive Date: 20050222
  Receipt Date: 20050112
  Transmission Date: 20050727
  Serious: Yes (Death, Life-Threatening, Hospitalization, Disabling, Other)
  Sender: FDA-Public Use
  Company Number: US-MERCK-0501USA01386

PATIENT
  Age: 86 Year
  Sex: Female
  Weight: 57 kg

DRUGS (12)
  1. ZOCOR [Suspect]
     Indication: BLOOD CHOLESTEROL INCREASED
     Route: 048
     Dates: start: 20020901, end: 20040701
  2. VERAPAMIL [Suspect]
     Indication: BLOOD PRESSURE
     Route: 048
     Dates: start: 20020901, end: 20040701
  3. LOPRESSOR [Concomitant]
     Route: 048
  4. MAXZIDE [Concomitant]
     Route: 048
  5. ALTACE [Concomitant]
     Route: 048
  6. CALCIUM (UNSPECIFIED) [Concomitant]
     Route: 065
  7. NEXIUM [Concomitant]
     Route: 048
  8. MIACALCIN [Concomitant]
     Route: 065
  9. ATIVAN [Concomitant]
     Indication: SLEEP DISORDER
     Route: 048
  10. MACRODANTIN [Concomitant]
     Route: 048
  11. ASPIRIN [Concomitant]
     Route: 048
  12. TUMS [Concomitant]
     Route: 065

REACTIONS (31)
  - ANAEMIA [None]
  - ARTERIAL OCCLUSIVE DISEASE [None]
  - ATRIAL FIBRILLATION [None]
  - BLOOD PRESSURE DECREASED [None]
  - BRADYCARDIA [None]
  - CARDIAC ARREST [None]
  - CARDIAC FAILURE CONGESTIVE [None]
  - CARDIOMEGALY [None]
  - CLOSTRIDIUM COLITIS [None]
  - CONFUSIONAL STATE [None]
  - CORONARY ARTERY DISEASE [None]
  - DEHYDRATION [None]
  - DRUG INTERACTION [None]
  - DYSARTHRIA [None]
  - FALL [None]
  - GASTRIC ULCER [None]
  - GASTROINTESTINAL HAEMORRHAGE [None]
  - HEART RATE DECREASED [None]
  - IMPAIRED GASTRIC EMPTYING [None]
  - ISCHAEMIC HEPATITIS [None]
  - METHICILLIN-RESISTANT STAPHYLOCOCCAL AUREUS TEST NEGATIVE [None]
  - MYOCARDIAL INFARCTION [None]
  - OESOPHAGITIS [None]
  - PEPTIC ULCER [None]
  - RENAL FAILURE ACUTE [None]
  - RENAL TUBULAR NECROSIS [None]
  - RESPIRATORY FAILURE [None]
  - RHABDOMYOLYSIS [None]
  - SEPTIC SHOCK [None]
  - STAPHYLOCOCCAL SEPSIS [None]
  - WHITE BLOOD CELL COUNT INCREASED [None]
